FAERS Safety Report 4388543-0 (Version None)
Quarter: 2004Q2

REPORT INFORMATION
  Report Type: 
  Country: None (occurrence: None)
  Receive Date: 20040625
  Receipt Date: 20040611
  Transmission Date: 20050107
  Serious: Yes (Hospitalization, Congenital Anomaly)
  Sender: FDA-Public Use
  Company Number: TNZUK200400074

PATIENT
  Sex: Male

DRUGS (1)
  1. INNOHEP [Suspect]
     Dosage: 5500 IU
     Dates: start: 20000301, end: 20001004

REACTIONS (4)
  - APLASIA CUTIS CONGENITA [None]
  - CONGENITAL ANOMALY [None]
  - DRUG EXPOSURE DURING PREGNANCY [None]
  - PREMATURE BABY [None]
